FAERS Safety Report 8115452 (Version 3)
Quarter: 2013Q2

REPORT INFORMATION
  Report Type: Spontaneous
  Country: US (occurrence: US)
  Receive Date: 20110831
  Receipt Date: 20130424
  Transmission Date: 20140414
  Serious: Yes (Hospitalization, Other)
  Sender: FDA-Public Use
  Company Number: US-BAYER-2011-078943

PATIENT
  Age: 24 Year
  Sex: Female
  Weight: 77.1 kg

DRUGS (11)
  1. YASMIN [Suspect]
     Dosage: UNK
     Dates: start: 200105, end: 200305
  2. ROLAIDS [CALCIUM CARBONATE,MAGNESIUM HYDROXIDE] [Concomitant]
  3. BYSTOLIC [Concomitant]
     Dosage: 10 MG, UNK
     Route: 048
  4. CIPROFLOXACIN [Concomitant]
     Dosage: 500 MG, 1 BID
     Route: 048
  5. METRONIDAZOLE [Concomitant]
     Dosage: 500 MG, 1 TID
     Route: 048
  6. ACETAMINOPHEN W/CODEINE [Concomitant]
     Dosage: 1 OR 2 TABLETS EVERY 4 HOURS AS NEEDED
     Route: 048
  7. MORPHINE [Concomitant]
  8. TORADOL [Concomitant]
  9. NORINYL [Concomitant]
  10. ANTIBIOTICS [Concomitant]
  11. DARVOCET [Concomitant]

REACTIONS (3)
  - Pulmonary embolism [None]
  - Cholecystectomy [None]
  - Cholecystitis acute [None]
